FAERS Safety Report 12520814 (Version 1)
Quarter: 2016Q3

REPORT INFORMATION
  Report Type: Spontaneous
  Country: US (occurrence: US)
  Receive Date: 20160701
  Receipt Date: 20160701
  Transmission Date: 20161109
  Serious: No
  Sender: FDA-Public Use
  Company Number: US-PFIZER INC-2016291500

PATIENT
  Sex: Female

DRUGS (2)
  1. ADVIL [Suspect]
     Active Substance: IBUPROFEN
     Dosage: TWO TABLETS BY MOUTH AS NEEDED
     Route: 048
     Dates: start: 20160607
  2. ADVIL [Suspect]
     Active Substance: IBUPROFEN
     Indication: HEADACHE
     Dosage: TWO TABLETS BY MOUTH AS NEEDED
     Route: 048

REACTIONS (4)
  - Throat irritation [Not Recovered/Not Resolved]
  - Foreign body [Not Recovered/Not Resolved]
  - Chest pain [Not Recovered/Not Resolved]
  - Intentional product misuse [Not Recovered/Not Resolved]
